FAERS Safety Report 7635590-9 (Version None)
Quarter: 2011Q3

REPORT INFORMATION
  Report Type: 
  Country: None (occurrence: None)
  Receive Date: 20110726
  Receipt Date: 20110718
  Transmission Date: 20111222
  Serious: Yes (Other)
  Sender: FDA-Public Use
  Company Number: GB-JNJFOC-20110411068

PATIENT
  Age: 15 Year
  Sex: Male
  Weight: 81.2 kg

DRUGS (4)
  1. CONCERTA [Suspect]
     Route: 048
     Dates: start: 20110310, end: 20110327
  2. CONCERTA [Suspect]
     Indication: ATTENTION DEFICIT/HYPERACTIVITY DISORDER
     Route: 048
     Dates: start: 20091204, end: 20110216
  3. CONCERTA [Suspect]
     Route: 048
     Dates: start: 20080401
  4. CREATINE [Concomitant]
     Indication: PRODUCT USED FOR UNKNOWN INDICATION
     Route: 048

REACTIONS (2)
  - WHITE BLOOD CELL COUNT DECREASED [None]
  - NEUTROPHIL COUNT DECREASED [None]
